FAERS Safety Report 7371988-4 (Version None)
Quarter: 2011Q1

REPORT INFORMATION
  Report Type: 
  Country: None (occurrence: None)
  Receive Date: 20110314
  Receipt Date: 20110228
  Transmission Date: 20110831
  Serious: Yes (Other)
  Sender: FDA-Public Use
  Company Number: 755166

PATIENT
  Age: 66 Year
  Sex: Female

DRUGS (1)
  1. SIMILASAN STYLE EYE RELIEF 10 ML (HOMEOPATHIC) [Suspect]
     Indication: HORDEOLUM
     Dosage: 1X, 046 (OPHTH)
     Route: 047
     Dates: start: 20110225

REACTIONS (3)
  - CORNEAL ABRASION [None]
  - BLINDNESS UNILATERAL [None]
  - EYE BURNS [None]
